FAERS Safety Report 15467387 (Version 1)
Quarter: 2018Q4

REPORT INFORMATION
  Report Type: Spontaneous
  Country: US (occurrence: US)
  Receive Date: 20181005
  Receipt Date: 20181005
  Transmission Date: 20190204
  Serious: Yes (Life-Threatening, Hospitalization, Other)
  Sender: FDA-Public Use
  Company Number: US-DRREDDYS-USA/USA/18/0104512

PATIENT
  Age: 77 Year
  Sex: Male

DRUGS (2)
  1. COLCHICINE. [Concomitant]
     Active Substance: COLCHICINE
     Indication: GOUTY ARTHRITIS
     Dosage: STARTED 1 MONTH AGO
     Route: 065
  2. ALLOPURINOL. [Suspect]
     Active Substance: ALLOPURINOL
     Indication: GOUTY ARTHRITIS
     Route: 065

REACTIONS (6)
  - Myalgia [Unknown]
  - Bronchiolitis [Unknown]
  - Drug reaction with eosinophilia and systemic symptoms [Unknown]
  - Small intestinal perforation [Unknown]
  - Hypertransaminasaemia [Unknown]
  - Acute kidney injury [Unknown]
